FAERS Safety Report 18856889 (Version 1)
Quarter: 2021Q1

REPORT INFORMATION
  Report Type: Report from Study
  Country: None (occurrence: US)
  Receive Date: 20210208
  Receipt Date: 20210208
  Transmission Date: 20210420
  Serious: Yes (Other)
  Sender: FDA-Public Use
  Company Number: US-ABBVIE-19K-163-2687881-00

PATIENT
  Sex: Male

DRUGS (2)
  1. HUMIRA [Suspect]
     Active Substance: ADALIMUMAB
     Indication: PSORIATIC ARTHROPATHY
  2. HUMIRA [Suspect]
     Active Substance: ADALIMUMAB
     Indication: RHEUMATOID ARTHRITIS
     Dosage: CITRATE FREE
     Route: 058

REACTIONS (11)
  - Nerve injury [Unknown]
  - Musculoskeletal disorder [Unknown]
  - Hypophagia [Unknown]
  - Pain [Unknown]
  - Rash [Not Recovered/Not Resolved]
  - Hiccups [Not Recovered/Not Resolved]
  - Loss of personal independence in daily activities [Unknown]
  - Post procedural haemorrhage [Unknown]
  - Nodule [Unknown]
  - Hypoaesthesia [Unknown]
  - Arthralgia [Unknown]
